FAERS Safety Report 4416348-0 (Version None)
Quarter: 2004Q3

REPORT INFORMATION
  Report Type: 
  Country: None (occurrence: None)
  Receive Date: 20040805
  Receipt Date: 20040625
  Transmission Date: 20050211
  Serious: Yes (Hospitalization)
  Sender: FDA-Public Use
  Company Number: JP-ROCHE-372380

PATIENT
  Age: 37 Year
  Sex: Female

DRUGS (7)
  1. TAMIFLU [Suspect]
     Route: 048
     Dates: start: 20040326, end: 20040329
  2. MEIACT [Suspect]
     Indication: UPPER RESPIRATORY TRACT INFLAMMATION
     Route: 048
     Dates: start: 20040326, end: 20040329
  3. CEFAZOLIN SODIUM [Suspect]
     Indication: UPPER RESPIRATORY TRACT INFLAMMATION
     Dosage: DRUG NAME REPORTED AS TOKIO. ROUTE REPORTED AS DRIP. FREQUENCY REPORTED AS SID.
     Route: 050
     Dates: start: 20040326, end: 20040329
  4. ZITHROMAX [Suspect]
     Indication: PNEUMONIA
     Dosage: FREQUENCY REPORTED AS SID.
     Route: 048
     Dates: start: 20040329, end: 20040330
  5. SALSOCAIN [Suspect]
     Dosage: ROUTE REPORTED AS DRIP. FREQUENCY REPORTED AS SID.
     Route: 050
     Dates: start: 20040326, end: 20040329
  6. LOXONIN [Concomitant]
     Indication: UPPER RESPIRATORY TRACT INFLAMMATION
     Route: 048
     Dates: start: 20040326
  7. CLINDAMYCIN HCL [Suspect]
     Indication: PNEUMONIA
     Dosage: FREQUENCY REPORTED AS SID. TAKEN VIA DRIP.
     Route: 065
     Dates: start: 20040329, end: 20040329

REACTIONS (5)
  - BLOOD CREATINE PHOSPHOKINASE INCREASED [None]
  - CHILLS [None]
  - HYPERTHERMIA [None]
  - LIVER DISORDER [None]
  - PANIC REACTION [None]
